FAERS Safety Report 7892791-2 (Version None)
Quarter: 2011Q4

REPORT INFORMATION
  Report Type: 
  Country: None (occurrence: None)
  Receive Date: 20111104
  Receipt Date: 20111025
  Transmission Date: 20120403
  Serious: Yes (Hospitalization)
  Sender: FDA-Public Use
  Company Number: RS-NOVOPROD-335345

PATIENT

DRUGS (4)
  1. CLONAZEPAM [Concomitant]
     Dosage: 0.5 MG, TID
     Route: 048
     Dates: start: 20110101
  2. RISPERIDONE [Concomitant]
     Dosage: 0.2 MG, BID
     Route: 048
     Dates: start: 20110401
  3. MELIPRAMIN [Concomitant]
     Dosage: 25 MG, BID
     Route: 048
     Dates: start: 20101101
  4. NORDITROPIN [Suspect]
     Indication: GROWTH HORMONE DEFICIENCY
     Dosage: 0.77 MG, (6 CLICKS) EACH EVENING BEFORE BEDTIME
     Route: 058
     Dates: start: 20090618

REACTIONS (2)
  - HYPERGLYCAEMIA [None]
  - DECREASED APPETITE [None]
